FAERS Safety Report 6990697-4 (Version None)
Quarter: 2010Q3

REPORT INFORMATION
  Report Type: 
  Country: None (occurrence: None)
  Receive Date: 20100916
  Receipt Date: 20100728
  Transmission Date: 20110219
  Serious: Yes (Death, Hospitalization, Other)
  Sender: FDA-Public Use
  Company Number: CA-PFIZER INC-2010046506

PATIENT
  Sex: Male

DRUGS (8)
  1. LYRICA [Suspect]
     Indication: PAIN
     Dosage: 25 MG, 1X/DAY
     Route: 048
  2. LYRICA [Suspect]
     Indication: NEURALGIA
  3. CARVEDILOL [Concomitant]
     Indication: CARDIAC DISORDER
     Dosage: 25 MG, 2X/DAY
     Route: 048
  4. DIGOXIN [Concomitant]
     Indication: CARDIAC DISORDER
     Dosage: 0.0625, 1X/DAY
     Route: 048
  5. LASIX [Concomitant]
     Indication: DIURETIC THERAPY
     Dosage: 80 MG, 2X/DAY
     Route: 048
  6. SPIRONOLACTONE [Concomitant]
     Indication: BLOOD POTASSIUM
     Dosage: 25 MG, 2X/DAY
     Route: 048
  7. ZAROXOLYN [Concomitant]
     Dosage: 5 MG, TWICE A WEEK
     Route: 048
  8. CORDARONE [Concomitant]
     Indication: CARDIAC DISORDER
     Dosage: 200 MG, 1X/DAY
     Route: 048

REACTIONS (8)
  - ASTHENIA [None]
  - DIARRHOEA [None]
  - DIZZINESS [None]
  - FALL [None]
  - HYPERKALAEMIA [None]
  - HYPOTENSION [None]
  - RENAL IMPAIRMENT [None]
  - SYNCOPE [None]
